FAERS Safety Report 12215749 (Version 2)
Quarter: 2016Q2

REPORT INFORMATION
  Report Type: Spontaneous
  Country: US (occurrence: US)
  Receive Date: 20160328
  Receipt Date: 20160401
  Transmission Date: 20160815
  Serious: Yes (Other)
  Sender: FDA-Public Use
  Company Number: US-LUNDBECK-DKLU2011707

PATIENT
  Age: 45 Year
  Sex: Male
  Weight: 84 kg

DRUGS (16)
  1. ONFI [Suspect]
     Active Substance: CLOBAZAM
     Dosage: PM
     Dates: start: 20140912
  2. ONFI [Suspect]
     Active Substance: CLOBAZAM
     Dosage: AM
     Dates: start: 201409
  3. ONFI [Suspect]
     Active Substance: CLOBAZAM
     Dosage: AM
     Route: 065
     Dates: start: 20140926
  4. FYCOMPA [Suspect]
     Active Substance: PERAMPANEL
     Dosage: RAISING FYCOMPA TO 3 AT HS
     Route: 065
     Dates: start: 20140918
  5. ONFI [Suspect]
     Active Substance: CLOBAZAM
     Dates: start: 201409
  6. FYCOMPA [Suspect]
     Active Substance: PERAMPANEL
     Indication: PRODUCT USED FOR UNKNOWN INDICATION
     Dosage: DROPPING 4 MG
     Route: 065
     Dates: start: 20140916
  7. KEPPRA [Concomitant]
     Active Substance: LEVETIRACETAM
     Indication: PRODUCT USED FOR UNKNOWN INDICATION
     Route: 065
  8. BANZEL [Concomitant]
     Active Substance: RUFINAMIDE
     Indication: PRODUCT USED FOR UNKNOWN INDICATION
     Route: 065
  9. APTIOM [Concomitant]
     Active Substance: ESLICARBAZEPINE ACETATE
     Route: 065
     Dates: start: 20160216, end: 20160219
  10. ONFI [Suspect]
     Active Substance: CLOBAZAM
     Indication: COMPLEX PARTIAL SEIZURES
     Dates: start: 20140814
  11. ONFI [Suspect]
     Active Substance: CLOBAZAM
     Indication: EPILEPSY
     Dosage: AM
     Dates: start: 20140912
  12. ONFI [Suspect]
     Active Substance: CLOBAZAM
     Dosage: PM
     Route: 065
     Dates: start: 20140926
  13. ONFI [Suspect]
     Active Substance: CLOBAZAM
  14. ONFI [Suspect]
     Active Substance: CLOBAZAM
  15. APTIOM [Concomitant]
     Active Substance: ESLICARBAZEPINE ACETATE
     Indication: PRODUCT USED FOR UNKNOWN INDICATION
     Route: 065
     Dates: start: 20160215, end: 20160216
  16. ONFI [Suspect]
     Active Substance: CLOBAZAM
     Dosage: PM
     Dates: start: 201409

REACTIONS (13)
  - Sleep disorder [Not Recovered/Not Resolved]
  - Constipation [Recovering/Resolving]
  - Complex partial seizures [Recovering/Resolving]
  - Headache [Not Recovered/Not Resolved]
  - Dysgeusia [Not Recovered/Not Resolved]
  - Hypopnoea [Not Recovered/Not Resolved]
  - Fatigue [Not Recovered/Not Resolved]
  - Anxiety [Not Recovered/Not Resolved]
  - Agitation [Not Recovered/Not Resolved]
  - Drop attacks [Unknown]
  - Influenza [Recovered/Resolved]
  - Cognitive disorder [Not Recovered/Not Resolved]
  - Dizziness [Not Recovered/Not Resolved]

NARRATIVE: CASE EVENT DATE: 201409
